FAERS Safety Report 13594760 (Version 1)
Quarter: 2017Q2

REPORT INFORMATION
  Report Type: Spontaneous
  Country: FR (occurrence: FR)
  Receive Date: 20170530
  Receipt Date: 20170530
  Transmission Date: 20170830
  Serious: Yes (Hospitalization)
  Sender: FDA-Public Use
  Company Number: FR-ACCORD-051858

PATIENT
  Age: 54 Year
  Sex: Male

DRUGS (5)
  1. GRANOCYTE [Concomitant]
     Active Substance: LENOGRASTIM
     Dosage: 34 MUI/ML?AT DAILY DOSE OF ONE VIAL DURING 3 DAYS AFTER EACH CYCLE
     Route: 042
     Dates: start: 20140622
  2. ARANDRON [Concomitant]
     Dosage: ONE DOSAGE FORM?COMPRESSED
     Route: 048
     Dates: start: 20140620
  3. DOCETAXEL ACCORD [Suspect]
     Active Substance: DOCETAXEL
     Indication: PROSTATE CANCER
     Dosage: ONCE EVERY THREE WEEK?160 MG/8 ML
     Route: 042
     Dates: start: 20140526, end: 20140912
  4. NEORECORMON [Concomitant]
     Active Substance: ERYTHROPOIETIN
     Dosage: ONE DOSAGE FORM
     Route: 058
     Dates: start: 20140620
  5. ENANTONE LP [Concomitant]
     Active Substance: LEUPROLIDE ACETATE
     Dosage: 11.25 MG?ONE VIAL EVERY THREE MONTHS
     Route: 058

REACTIONS (7)
  - Sinus tachycardia [Unknown]
  - Aortic stenosis [Unknown]
  - Metastases to lymph nodes [Unknown]
  - Metastases to bone [Unknown]
  - Pleural effusion [Recovered/Resolved]
  - Cardiac murmur [Unknown]
  - Generalised oedema [Recovered/Resolved]

NARRATIVE: CASE EVENT DATE: 20140822
